FAERS Safety Report 6522584-X (Version None)
Quarter: 2009Q4

REPORT INFORMATION
  Report Type: 
  Country: None (occurrence: None)
  Receive Date: 20091230
  Receipt Date: 20091218
  Transmission Date: 20100525
  Serious: Yes (Hospitalization)
  Sender: FDA-Public Use
  Company Number: CA-AMGEN-QUU380248

PATIENT
  Sex: Female
  Weight: 90.8 kg

DRUGS (22)
  1. ENBREL [Suspect]
     Indication: RHEUMATOID ARTHRITIS
     Route: 058
     Dates: start: 20060718
  2. LEUCOVORIN CALCIUM [Concomitant]
  3. CETIRIZINE HYDROCHLORIDE [Concomitant]
  4. LANSOPRAZOLE [Concomitant]
  5. NYSTATIN [Concomitant]
  6. NASONEX [Concomitant]
     Route: 045
  7. METHOTREXATE [Concomitant]
  8. TRIAMCINOLONE [Concomitant]
  9. ACETAMINOPHEN W/ CODEINE [Concomitant]
  10. CLINDAMYCIN [Concomitant]
  11. AERIUS [Concomitant]
  12. RAMIPRIL [Concomitant]
  13. CALCIUM CARBONATE [Concomitant]
  14. CITALOPRAM HYDROBROMIDE [Concomitant]
  15. VENLAFAXINE HCL [Concomitant]
  16. SYNTHROID [Concomitant]
  17. TRAZODONE HYDROCHLORIDE [Concomitant]
  18. ULTRAVATE [Concomitant]
  19. VITAMIN D [Concomitant]
  20. DICLOFENAC SODIUM [Concomitant]
  21. FOLIC ACID [Concomitant]
  22. GLUCOSAMINE SULFATE [Concomitant]

REACTIONS (2)
  - ARTHRITIS [None]
  - OSTEOARTHRITIS [None]
